FAERS Safety Report 15233199 (Version 1)
Quarter: 2018Q3

REPORT INFORMATION
  Report Type: Report from Study
  Country: US (occurrence: US)
  Receive Date: 20180802
  Receipt Date: 20180802
  Transmission Date: 20181010
  Serious: Yes (Other)
  Sender: FDA-Public Use
  Company Number: US-TEVA-2018-US-934812

PATIENT
  Age: 63 Year
  Sex: Female

DRUGS (3)
  1. LORATADINE. [Concomitant]
     Active Substance: LORATADINE
     Indication: PREMEDICATION
     Dosage: THE NIGHT PRIOR, THE MORNING OF, AND IMMEDIATELY BEFORE THE PACLITAXEL INFUSION
     Route: 048
  2. PACLITAXEL. [Suspect]
     Active Substance: PACLITAXEL
     Indication: OVARIAN CANCER STAGE III
     Route: 050
  3. CETIRIZINE [Concomitant]
     Active Substance: CETIRIZINE HYDROCHLORIDE
     Indication: PREMEDICATION
     Dosage: THE NIGHT PRIOR, THE MORNING OF, AND IMMEDIATELY BEFORE THE PACLITAXEL INFUSION
     Route: 065

REACTIONS (1)
  - Drug hypersensitivity [Recovered/Resolved]
